FAERS Safety Report 21921148 (Version 1)
Quarter: 2023Q1

REPORT INFORMATION
  Report Type: Spontaneous
  Country: US (occurrence: US)
  Receive Date: 20230127
  Receipt Date: 20230127
  Transmission Date: 20230417
  Serious: Yes (Other)
  Sender: FDA-Public Use
  Company Number: US-BAXTER-2023BAX011422

PATIENT
  Age: 29 Year

DRUGS (9)
  1. DOXORUBICIN [Suspect]
     Active Substance: DOXORUBICIN
     Indication: Plasma cell myeloma refractory
     Dosage: UNK
     Route: 065
  2. CYCLOPHOSPHAMIDE [Suspect]
     Active Substance: CYCLOPHOSPHAMIDE
     Indication: Plasma cell myeloma refractory
     Dosage: UNK
     Route: 065
  3. DARZALEX FASPRO [Suspect]
     Active Substance: DARATUMUMAB\HYALURONIDASE-FIHJ
     Indication: Plasma cell myeloma
     Dosage: UNK
     Route: 065
  4. TECLISTAMAB [Suspect]
     Active Substance: TECLISTAMAB
     Indication: Disease progression
     Dosage: UNK
     Route: 065
  5. CARVYKTI [Suspect]
     Active Substance: CILTACABTAGENE AUTOLEUCEL
     Indication: Product used for unknown indication
     Dosage: COMBINATION
     Route: 065
  6. PLATINUM [Suspect]
     Active Substance: PLATINUM
     Indication: Product used for unknown indication
     Dosage: SOMETHING WITH PLATINUM
     Route: 065
  7. REVLIMID [Suspect]
     Active Substance: LENALIDOMIDE
     Indication: Plasma cell myeloma
     Dosage: UNK
     Route: 065
  8. KYPROLIS [Suspect]
     Active Substance: CARFILZOMIB
     Indication: Plasma cell myeloma
     Dosage: UNK
     Route: 065
  9. DEXAMETHASONE [Suspect]
     Active Substance: DEXAMETHASONE
     Indication: Plasma cell myeloma
     Dosage: UNK
     Route: 065

REACTIONS (17)
  - Plasma cell myeloma recurrent [Unknown]
  - Mental impairment [Unknown]
  - Renal failure [Not Recovered/Not Resolved]
  - Urine output decreased [Unknown]
  - Panic reaction [Unknown]
  - Abdominal distension [Unknown]
  - Mobility decreased [Unknown]
  - Appetite disorder [Unknown]
  - Muscle atrophy [Unknown]
  - Disease progression [Unknown]
  - Pain in extremity [Unknown]
  - Pain [Unknown]
  - Neoplasm [Unknown]
  - COVID-19 [Unknown]
  - Fatigue [Not Recovered/Not Resolved]
  - Back pain [Unknown]
  - Condition aggravated [Unknown]
